FAERS Safety Report 24703283 (Version 1)
Quarter: 2024Q4

REPORT INFORMATION
  Report Type: Spontaneous
  Country: TH (occurrence: TH)
  Receive Date: 20241205
  Receipt Date: 20241205
  Transmission Date: 20250114
  Serious: Yes (Other)
  Sender: NOVARTIS
  Company Number: TH-002147023-NVSC2024TH227977

PATIENT
  Age: 37 Year
  Sex: Male

DRUGS (1)
  1. NILOTINIB [Suspect]
     Active Substance: NILOTINIB
     Indication: Chronic myeloid leukaemia
     Dosage: 800 MG, QD
     Route: 065

REACTIONS (19)
  - Diabetes mellitus [Unknown]
  - Philadelphia chromosome positive [Unknown]
  - Dyslipidaemia [Unknown]
  - Cytogenetic response [Unknown]
  - Haemoglobin decreased [Unknown]
  - Atypical lymphocytes increased [Unknown]
  - Red blood cell count decreased [Unknown]
  - Haemoglobin decreased [Unknown]
  - Mean cell haemoglobin concentration decreased [Unknown]
  - Red cell distribution width increased [Unknown]
  - White blood cell count decreased [Unknown]
  - White blood cell count increased [Unknown]
  - Platelet count increased [Unknown]
  - Mean platelet volume increased [Unknown]
  - Neutrophil count increased [Unknown]
  - Lymphocyte count increased [Unknown]
  - Eosinophil percentage decreased [Unknown]
  - Eosinophil percentage increased [Unknown]
  - Basophil percentage decreased [Unknown]
